FAERS Safety Report 8320865-0 (Version None)
Quarter: 2012Q2

REPORT INFORMATION
  Report Type: 
  Country: None (occurrence: None)
  Receive Date: 20120430
  Receipt Date: 20120423
  Transmission Date: 20120825
  Serious: Yes (Other)
  Sender: FDA-Public Use
  Company Number: PHHY2012BR035172

PATIENT
  Sex: Male

DRUGS (1)
  1. FORMOTEROL FUMARATE [Suspect]
     Dosage: UNK UKN, UNK
     Route: 048

REACTIONS (4)
  - DYSSTASIA [None]
  - DYSPNOEA [None]
  - TREMOR [None]
  - WEIGHT DECREASED [None]
